FAERS Safety Report 13801476 (Version 1)
Quarter: 2017Q3

REPORT INFORMATION
  Report Type: Spontaneous
  Country: US (occurrence: US)
  Receive Date: 20170727
  Receipt Date: 20170727
  Transmission Date: 20171127
  Serious: Yes (Other)
  Sender: FDA-Public Use
  Company Number: US-PFIZER INC-2017322040

PATIENT
  Age: 66 Year
  Sex: Female
  Weight: 80.29 kg

DRUGS (1)
  1. ZOLOFT [Suspect]
     Active Substance: SERTRALINE HYDROCHLORIDE
     Indication: DEPRESSION
     Dosage: 50MG TABLET ONE AND A HALF TABLETS BY MOUTH ONCE A DAY
     Route: 048
     Dates: end: 20170707

REACTIONS (6)
  - Intentional product use issue [Recovered/Resolved]
  - Central nervous system stimulation [Recovered/Resolved]
  - Insomnia [Recovered/Resolved]
  - Overdose [Unknown]
  - Product quality issue [Recovered/Resolved]
  - Headache [Recovered/Resolved]

NARRATIVE: CASE EVENT DATE: 20170705
